FAERS Safety Report 6731040-5 (Version None)
Quarter: 2010Q2

REPORT INFORMATION
  Report Type: 
  Country: None (occurrence: None)
  Receive Date: 20100518
  Receipt Date: 20100510
  Transmission Date: 20101027
  Serious: Yes (Congenital Anomaly)
  Sender: FDA-Public Use
  Company Number: GB-B.I. PHARMACEUTICALS,INC./RIDGEFIELD-2010-BP-04938BP

PATIENT

DRUGS (5)
  1. VIRAMUNE [Suspect]
     Indication: HIV INFECTION
     Route: 064
     Dates: start: 20070816
  2. EPZICOM [Concomitant]
     Indication: HIV INFECTION
     Route: 064
     Dates: start: 20070101
  3. COMBIVIR [Concomitant]
     Indication: HIV INFECTION
     Route: 064
     Dates: start: 20070801
  4. EFAVIRENZ [Concomitant]
     Indication: HIV INFECTION
     Route: 064
     Dates: start: 20071001
  5. KALETRA [Concomitant]
     Indication: HIV INFECTION
     Route: 064
     Dates: start: 20070920

REACTIONS (8)
  - ABORTION INDUCED [None]
  - CARDIAC MALPOSITION [None]
  - CONGENITAL HEPATOBILIARY ANOMALY [None]
  - DEFORMITY THORAX [None]
  - DIAPHRAGMATIC APLASIA [None]
  - EXOMPHALOS [None]
  - MATERNAL DRUGS AFFECTING FOETUS [None]
  - MICROCEPHALY [None]
